FAERS Safety Report 6527256-3 (Version None)
Quarter: 2010Q1

REPORT INFORMATION
  Report Type: 
  Country: None (occurrence: None)
  Receive Date: 20100105
  Receipt Date: 20091228
  Transmission Date: 20100710
  Serious: Yes (Hospitalization)
  Sender: FDA-Public Use
  Company Number: FR-PFIZER INC-2009315075

PATIENT
  Age: 86 Year
  Sex: Female

DRUGS (3)
  1. TRIFLUCAN [Suspect]
     Dosage: UNK
     Route: 048
     Dates: end: 20091030
  2. PREVISCAN [Suspect]
     Indication: CARDIOVASCULAR DISORDER
     Dosage: 5 MG, 1X/DAY
     Route: 048
     Dates: end: 20091030
  3. FUNGIZONE [Concomitant]
     Indication: OESOPHAGEAL CANDIDIASIS

REACTIONS (1)
  - HYPOPROTHROMBINAEMIA [None]
